FAERS Safety Report 10712846 (Version 1)
Quarter: 2015Q1

REPORT INFORMATION
  Report Type: Spontaneous
  Country: CA (occurrence: CA)
  Receive Date: 20150115
  Receipt Date: 20150115
  Transmission Date: 20150721
  Serious: Yes (Other)
  Sender: FDA-Public Use
  Company Number: CA-ROCHE-1520442

PATIENT
  Age: 60 Year
  Sex: Female

DRUGS (5)
  1. BRICANYL [Concomitant]
     Active Substance: TERBUTALINE SULFATE
  2. PULMICORT TURBUHALER [Concomitant]
     Active Substance: BUDESONIDE
  3. PREDNISONE. [Concomitant]
     Active Substance: PREDNISONE
  4. OMNARIS [Concomitant]
     Active Substance: CICLESONIDE
  5. XOLAIR [Suspect]
     Active Substance: OMALIZUMAB
     Indication: ASTHMA
     Route: 058
     Dates: start: 20141204, end: 20141204

REACTIONS (11)
  - Swollen tongue [Unknown]
  - Asthma [Unknown]
  - Cough [Unknown]
  - Dizziness [Unknown]
  - Asthenia [Unknown]
  - Dyspnoea [Unknown]
  - Pulmonary function test decreased [Unknown]
  - Headache [Unknown]
  - Heart rate increased [Unknown]
  - Transient ischaemic attack [Unknown]
  - Blood pressure decreased [Unknown]

NARRATIVE: CASE EVENT DATE: 20141204
